APPROVED DRUG PRODUCT: ACETAMINOPHEN AND CODEINE PHOSPHATE
Active Ingredient: ACETAMINOPHEN; CODEINE PHOSPHATE
Strength: 300MG;30MG
Dosage Form/Route: TABLET;ORAL
Application: A211610 | Product #002 | TE Code: AA
Applicant: HIBROW HEALTHCARE PRIVATE LTD
Approved: Jun 27, 2019 | RLD: No | RS: No | Type: RX